FAERS Safety Report 7585012-1 (Version None)
Quarter: 2011Q2

REPORT INFORMATION
  Report Type: 
  Country: None (occurrence: None)
  Receive Date: 20110630
  Receipt Date: 20110620
  Transmission Date: 20111010
  Serious: Yes (Other)
  Sender: FDA-Public Use
  Company Number: GB-BAUSCH-2005BL004072

PATIENT
  Age: 51 Year
  Sex: Male

DRUGS (1)
  1. PILOCARPINE [Suspect]
     Indication: MIOSIS
     Route: 047

REACTIONS (6)
  - INTRAOCULAR PRESSURE INCREASED [None]
  - ANGLE CLOSURE GLAUCOMA [None]
  - VISUAL ACUITY REDUCED [None]
  - OCULAR DISCOMFORT [None]
  - LENS DISLOCATION [None]
  - CORNEAL OEDEMA [None]
